FAERS Safety Report 18819972 (Version 1)
Quarter: 2021Q1

REPORT INFORMATION
  Report Type: Report from Study
  Country: CA (occurrence: CA)
  Receive Date: 20210202
  Receipt Date: 20210202
  Transmission Date: 20210419
  Serious: Yes (Other)
  Sender: FDA-Public Use
  Company Number: CA-ORION CORPORATION ORION PHARMA-21_00012893

PATIENT
  Sex: Female

DRUGS (5)
  1. OTEZLA [Concomitant]
     Active Substance: APREMILAST
     Route: 065
  2. BETAMETHASONE DIPROPIONATE. [Concomitant]
     Active Substance: BETAMETHASONE DIPROPIONATE
     Route: 065
  3. DOVONEX [Concomitant]
     Active Substance: CALCIPOTRIENE
     Route: 065
  4. SORIATANE [Concomitant]
     Active Substance: ACITRETIN
     Route: 065
  5. METHOTREXATE (TRADE NAME UNKNOWN) [Suspect]
     Active Substance: METHOTREXATE
     Indication: PSORIASIS
     Route: 065

REACTIONS (10)
  - Gait disturbance [Unknown]
  - Pain [Unknown]
  - Quality of life decreased [Unknown]
  - Burning sensation [Unknown]
  - Pain of skin [Unknown]
  - Psoriasis [Unknown]
  - Pruritus [Unknown]
  - Chest X-ray abnormal [Unknown]
  - Haemorrhage [Unknown]
  - Pain in extremity [Unknown]
